FAERS Safety Report 7686201-8 (Version None)
Quarter: 2011Q3

REPORT INFORMATION
  Report Type: 
  Country: None (occurrence: None)
  Receive Date: 20110811
  Receipt Date: 20110729
  Transmission Date: 20111222
  Serious: Yes (Life-Threatening, Hospitalization, Disabling, Other)
  Sender: FDA-Public Use
  Company Number: AUR-APL-2011-03071

PATIENT
  Age: 69 Year
  Sex: Female

DRUGS (15)
  1. TRIMETHOPRIM [Concomitant]
  2. CITALOPRAM HYDROBROMIDE [Concomitant]
  3. ACETAMINOPHEN [Concomitant]
  4. FURUSEMIDE (FUROSEMIDE) [Concomitant]
  5. PERINDOPRIL ERBUMINE [Concomitant]
  6. SPIRONOLACTONE [Concomitant]
  7. CODEINE PHOSPHATE (CODEINE PHOSPHATE) [Concomitant]
  8. FLOXACILLIN SODIUM [Concomitant]
  9. WARFARIN SODIUM [Concomitant]
  10. SIMVASTATIN [Suspect]
     Indication: PRODUCT USED FOR UNKNOWN INDICATION
     Dosage: 40 MG (40 MG, 1 IN 1 D), ORAL
     Route: 048
     Dates: start: 20061201, end: 20101022
  11. BUMETANIDE [Concomitant]
  12. ASPIRIN [Concomitant]
  13. BALSALAZIDE (BALASALAZIDE) [Concomitant]
  14. NEBIVOLOL HCL [Concomitant]
  15. AMIODARONE HCL [Suspect]
     Indication: PRODUCT USED FOR UNKNOWN INDICATION
     Dosage: 200 MG (200 MG, 1 IN 1 D), ORAL
     Route: 048
     Dates: start: 20091001, end: 20101022

REACTIONS (4)
  - RENAL IMPAIRMENT [None]
  - MOBILITY DECREASED [None]
  - INTERNATIONAL NORMALISED RATIO INCREASED [None]
  - RHABDOMYOLYSIS [None]
